FAERS Safety Report 7265177-1 (Version None)
Quarter: 2011Q1

REPORT INFORMATION
  Report Type: 
  Country: None (occurrence: None)
  Receive Date: 20110131
  Receipt Date: 20110127
  Transmission Date: 20110831
  Serious: Yes (Death, Life-Threatening, Hospitalization, Other)
  Sender: FDA-Public Use
  Company Number: PHHY2011EC06080

PATIENT
  Sex: Female

DRUGS (6)
  1. LASIX [Concomitant]
  2. MINIPRESS [Concomitant]
  3. DIOVAN [Suspect]
     Dosage: 160 MG, QD (NIGHT)
     Route: 048
     Dates: start: 20070101, end: 20100601
  4. AMLODIPINE [Concomitant]
  5. DIOVAN [Suspect]
     Indication: HYPERTENSION
     Dosage: 80 MG, QD (MORNING)
  6. LEVOTIROXINA [Concomitant]

REACTIONS (2)
  - LIP NEOPLASM MALIGNANT STAGE UNSPECIFIED [None]
  - CARDIAC ARREST [None]
